FAERS Safety Report 6192142-8 (Version None)
Quarter: 2009Q2

REPORT INFORMATION
  Report Type: 
  Country: None (occurrence: None)
  Receive Date: 20090515
  Receipt Date: 20090505
  Transmission Date: 20091009
  Serious: Yes (Hospitalization)
  Sender: FDA-Public Use
  Company Number: US-ELI_LILLY_AND_COMPANY-US200903002483

PATIENT
  Age: 67 Year
  Sex: Female
  Weight: 69.841 kg

DRUGS (1)
  1. CYMBALTA [Suspect]
     Indication: AFFECTIVE DISORDER
     Dosage: 60 MG, UNK
     Dates: start: 20090201, end: 20090301

REACTIONS (1)
  - ANGIOEDEMA [None]
